FAERS Safety Report 17524160 (Version 1)
Quarter: 2020Q1

REPORT INFORMATION
  Report Type: Spontaneous
  Country: US (occurrence: US)
  Receive Date: 20200310
  Receipt Date: 20200310
  Transmission Date: 20200409
  Serious: Yes (Death)
  Sender: FDA-Public Use
  Company Number: None

PATIENT
  Age: 83 Year
  Sex: Male
  Weight: 90.72 kg

DRUGS (22)
  1. SIMETHICONE (DIMETHICONE) [Concomitant]
     Active Substance: DIMETHICONE
  2. APAP EXTRA STRENGTH [Concomitant]
     Active Substance: ACETAMINOPHEN
  3. RANITIDINE. [Concomitant]
     Active Substance: RANITIDINE
  4. ALOXI IV 0.25M/5ML [Concomitant]
  5. PROCHLORPERAZINE 10MG [Concomitant]
  6. ARANESP 100MCG/ML IJ [Concomitant]
  7. DEXAMETHASONE 8MG/ML [Concomitant]
  8. XPOVIO [Suspect]
     Active Substance: SELINEXOR
     Dosage: ?          OTHER FREQUENCY:QWEEK;?
     Route: 048
     Dates: start: 20200107
  9. ACYCLOVIR 400MG [Concomitant]
     Active Substance: ACYCLOVIR
  10. PREDNISONE 5MG [Concomitant]
     Active Substance: PREDNISONE
  11. PROTONIX 20MG [Concomitant]
  12. EMEND IV 150MG [Concomitant]
  13. XGEVA SC 120MG/1.7ML [Concomitant]
  14. ZOFRAN [Concomitant]
     Active Substance: ONDANSETRON HYDROCHLORIDE
  15. TUMS [Concomitant]
     Active Substance: CALCIUM CARBONATE
  16. TOPROL XL 50MG [Concomitant]
  17. ALLOPURINOL 100MG [Concomitant]
     Active Substance: ALLOPURINOL
  18. BENADRYL 25MG [Concomitant]
  19. CELEXA [Concomitant]
     Active Substance: CITALOPRAM HYDROBROMIDE
  20. DARZALEX [Concomitant]
     Active Substance: DARATUMUMAB
  21. ALKERAN 2MG [Concomitant]
  22. ASA 81MG [Concomitant]
     Active Substance: ASPIRIN

REACTIONS (1)
  - Death [None]
